FAERS Safety Report 19369945 (Version 3)
Quarter: 2023Q2

REPORT INFORMATION
  Report Type: Spontaneous
  Country: US (occurrence: US)
  Receive Date: 20210603
  Receipt Date: 20230627
  Transmission Date: 20230722
  Serious: Yes (Other)
  Sender: FDA-Public Use
  Company Number: US-GILEAD-2021-0534071

PATIENT
  Age: 57 Year
  Sex: Female
  Weight: 85.275 kg

DRUGS (57)
  1. ATRIPLA [Suspect]
     Active Substance: EFAVIRENZ\EMTRICITABINE\TENOFOVIR DISOPROXIL FUMARATE
     Indication: HIV infection
     Dosage: UNK
     Route: 048
     Dates: start: 2003, end: 2006
  2. ATRIPLA [Suspect]
     Active Substance: EFAVIRENZ\EMTRICITABINE\TENOFOVIR DISOPROXIL FUMARATE
     Dosage: UNK
     Route: 048
     Dates: start: 2006, end: 2014
  3. ATRIPLA [Suspect]
     Active Substance: EFAVIRENZ\EMTRICITABINE\TENOFOVIR DISOPROXIL FUMARATE
     Dosage: UNK
     Route: 048
     Dates: start: 2014, end: 2018
  4. ATRIPLA [Suspect]
     Active Substance: EFAVIRENZ\EMTRICITABINE\TENOFOVIR DISOPROXIL FUMARATE
     Dosage: UNK
     Route: 048
     Dates: start: 2003, end: 201607
  5. GENVOYA [Concomitant]
     Active Substance: COBICISTAT\ELVITEGRAVIR\EMTRICITABINE\TENOFOVIR ALAFENAMIDE FUMARATE
  6. ACETAMINOPHEN [Concomitant]
     Active Substance: ACETAMINOPHEN
  7. ALBUTEROL [Concomitant]
     Active Substance: ALBUTEROL
  8. ALBUTEROL SULFATE [Concomitant]
     Active Substance: ALBUTEROL SULFATE
  9. AMOXICILLIN [Concomitant]
     Active Substance: AMOXICILLIN
  10. ARTIFICIAL TEARS (GLYCERIN\HYPROMELLOSES\POLYETHYLENE GLYCOL 400) [Concomitant]
     Active Substance: GLYCERIN\HYPROMELLOSES\POLYETHYLENE GLYCOL 400
  11. ATORVASTATIN [Concomitant]
     Active Substance: ATORVASTATIN
  12. BISACODYL [Concomitant]
     Active Substance: BISACODYL
  13. CHANTIX [Concomitant]
     Active Substance: VARENICLINE TARTRATE
  14. CICLOPIROX OLAMINE [Concomitant]
     Active Substance: CICLOPIROX OLAMINE
  15. CYCLOBENZAPRINE [Concomitant]
     Active Substance: CYCLOBENZAPRINE
  16. DICLOFENAC [Concomitant]
     Active Substance: DICLOFENAC
  17. DIPHENHYDRAMINE [Concomitant]
     Active Substance: DIPHENHYDRAMINE
  18. DOXEPIN [Concomitant]
     Active Substance: DOXEPIN
  19. BENADRYL [Concomitant]
     Active Substance: DIPHENHYDRAMINE HYDROCHLORIDE
  20. ESZOPICLONE [Concomitant]
     Active Substance: ESZOPICLONE
  21. CEFIXIME [Concomitant]
     Active Substance: CEFIXIME
  22. FLUTICASONE [Concomitant]
     Active Substance: FLUTICASONE
  23. FLONASE [Concomitant]
     Active Substance: FLUTICASONE PROPIONATE
  24. GABAPENTIN [Concomitant]
     Active Substance: GABAPENTIN
  25. HYDROCODONE [Concomitant]
     Active Substance: HYDROCODONE
  26. HYDROXYZINE [Concomitant]
     Active Substance: HYDROXYZINE HYDROCHLORIDE
  27. INCRUSE ELLIPTA [Concomitant]
     Active Substance: UMECLIDINIUM BROMIDE
  28. LIDOCAINE [Concomitant]
     Active Substance: LIDOCAINE
  29. LUNESTA [Concomitant]
     Active Substance: ESZOPICLONE
  30. MAGNESIUM CITRATE [Concomitant]
     Active Substance: MAGNESIUM CITRATE
  31. MELOXICAM [Concomitant]
     Active Substance: MELOXICAM
  32. MIRTAZAPINE [Concomitant]
     Active Substance: MIRTAZAPINE
  33. VITAMINS NOS [Concomitant]
     Active Substance: VITAMINS
  34. NAPROXEN [Concomitant]
     Active Substance: NAPROXEN
  35. NICOTINE [Concomitant]
     Active Substance: NICOTINE
  36. OLOPATADINE [Concomitant]
     Active Substance: OLOPATADINE
  37. ONDANSETRON [Concomitant]
     Active Substance: ONDANSETRON
  38. OXYCODONE [Concomitant]
     Active Substance: OXYCODONE
  39. APAP [Concomitant]
     Active Substance: ACETAMINOPHEN
  40. OYSCO D [CALCIUM;VITAMIN D NOS] [Concomitant]
  41. OYSTER SHELL [Concomitant]
     Active Substance: OSTREA EDULIS SHELL
  42. HIGH DENSITY POLYETHYLENE [Concomitant]
     Active Substance: HIGH DENSITY POLYETHYLENE
  43. SPIRIVA [Concomitant]
     Active Substance: TIOTROPIUM BROMIDE MONOHYDRATE
  44. SPIRIVA [Concomitant]
     Active Substance: TIOTROPIUM BROMIDE MONOHYDRATE
  45. SPIRIVA RESPIMAT [Concomitant]
     Active Substance: TIOTROPIUM BROMIDE
  46. TOPAMAX [Concomitant]
     Active Substance: TOPIRAMATE
  47. TOPIRAMATE [Concomitant]
     Active Substance: TOPIRAMATE
  48. TRAZODONE [Concomitant]
     Active Substance: TRAZODONE HYDROCHLORIDE
  49. VALACYCLOVIR [Concomitant]
     Active Substance: VALACYCLOVIR HYDROCHLORIDE
  50. VENLAFAXINE HCL [Concomitant]
     Active Substance: VENLAFAXINE HYDROCHLORIDE
  51. VENTOLIN [Concomitant]
     Active Substance: ALBUTEROL SULFATE
  52. VITAMIN D NOS [Concomitant]
     Active Substance: VITAMIN D NOS
  53. VITAMIN D3 [Concomitant]
     Active Substance: CHOLECALCIFEROL
  54. DICLOFENAC [Concomitant]
     Active Substance: DICLOFENAC
  55. ZOFRAN [Concomitant]
     Active Substance: ONDANSETRON HYDROCHLORIDE
  56. ZOLPIDEM [Concomitant]
     Active Substance: ZOLPIDEM TARTRATE
  57. ZOLPIDEM TARTRATE [Concomitant]
     Active Substance: ZOLPIDEM TARTRATE

REACTIONS (11)
  - Multiple fractures [Unknown]
  - Osteopenia [Not Recovered/Not Resolved]
  - Pain [Not Recovered/Not Resolved]
  - Emotional distress [Not Recovered/Not Resolved]
  - Anxiety [Not Recovered/Not Resolved]
  - Anhedonia [Not Recovered/Not Resolved]
  - Avulsion fracture [Recovered/Resolved]
  - Foot fracture [Recovered/Resolved]
  - General physical health deterioration [Not Recovered/Not Resolved]
  - Depressed mood [Not Recovered/Not Resolved]
  - Depression [Unknown]

NARRATIVE: CASE EVENT DATE: 20151105
